FAERS Safety Report 8590603-5 (Version None)
Quarter: 2012Q3

REPORT INFORMATION
  Report Type: 
  Country: None (occurrence: None)
  Receive Date: 20120813
  Receipt Date: 20120719
  Transmission Date: 20120928
  Serious: Yes (Hospitalization)
  Sender: FDA-Public Use
  Company Number: JP-009507513-1208JPN005179

PATIENT

DRUGS (3)
  1. REBETOL [Suspect]
     Route: 048
     Dates: start: 20120529
  2. PEG-INTRON [Suspect]
     Dosage: 1.3MCG/KG
     Route: 058
     Dates: start: 20120529
  3. TELAVIC [Suspect]
     Route: 048
     Dates: start: 20120529

REACTIONS (1)
  - DEPRESSION [None]
